FAERS Safety Report 10368775 (Version 1)
Quarter: 2014Q3

REPORT INFORMATION
  Report Type: Spontaneous
  Country: US (occurrence: US)
  Receive Date: 20140807
  Receipt Date: 20140807
  Transmission Date: 20150326
  Serious: Yes (Other)
  Sender: FDA-Public Use
  Company Number: US-MYLAN-2014S1017893

PATIENT

DRUGS (7)
  1. AMPHETAMINE MIXED SALTS [Suspect]
     Active Substance: AMPHETAMINE ASPARTATE\AMPHETAMINE SULFATE\DEXTROAMPHETAMINE SACCHARATE\DEXTROAMPHETAMINE SULFATE
     Indication: SCHIZOPHRENIA, PARANOID TYPE
     Dosage: 10 MG,QD
  2. RISPERIDONE. [Suspect]
     Active Substance: RISPERIDONE
     Dosage: .5 MG,UNK
  3. OLANZAPINE. [Suspect]
     Active Substance: OLANZAPINE
     Dosage: 5 MG,UNK
  4. CYCLOBENZAPRINE [Suspect]
     Active Substance: CYCLOBENZAPRINE
     Dosage: 10 MG,UNK
  5. ZOLPIDEM [Suspect]
     Active Substance: ZOLPIDEM\ZOLPIDEM TARTRATE
     Dosage: 10 MG,HS
  6. LORAZEPAM. [Suspect]
     Active Substance: LORAZEPAM
     Dosage: 1 MG,TID
  7. BENZTROPINE [Suspect]
     Active Substance: BENZTROPINE
     Indication: SCHIZOPHRENIA, PARANOID TYPE
     Dosage: 1 MG,BID

REACTIONS (11)
  - Drooling [Unknown]
  - Irritability [Unknown]
  - Gait disturbance [Recovering/Resolving]
  - Dysarthria [Recovering/Resolving]
  - Tachycardia [Unknown]
  - Posture abnormal [Recovering/Resolving]
  - Speech disorder [Recovering/Resolving]
  - Hallucination, auditory [Unknown]
  - Tremor [Recovered/Resolved]
  - Musculoskeletal stiffness [Recovering/Resolving]
  - Muscle rigidity [Recovering/Resolving]
